FAERS Safety Report 5962802-X (Version None)
Quarter: 2008Q4

REPORT INFORMATION
  Report Type: 
  Country: None (occurrence: None)
  Receive Date: 20081124
  Receipt Date: 20081119
  Transmission Date: 20090506
  Serious: Yes (Hospitalization)
  Sender: FDA-Public Use
  Company Number: FR-BRISTOL-MYERS SQUIBB COMPANY-14415053

PATIENT
  Age: 20 Year
  Sex: Male

DRUGS (2)
  1. ABILIFY [Suspect]
     Indication: MENTAL DISORDER
     Route: 048
     Dates: start: 20080801
  2. RIVOTRIL [Suspect]
     Indication: MENTAL DISORDER
     Route: 048
     Dates: start: 20080801

REACTIONS (2)
  - SCROTAL ULCER [None]
  - SKIN NECROSIS [None]
